FAERS Safety Report 17807003 (Version 1)
Quarter: 2020Q2

REPORT INFORMATION
  Report Type: Spontaneous
  Country: US (occurrence: US)
  Receive Date: 20200520
  Receipt Date: 20200520
  Transmission Date: 20200714
  Serious: Yes (Disabling)
  Sender: FDA-Public Use
  Company Number: None

PATIENT
  Age: 20 Year
  Sex: Female

DRUGS (4)
  1. NEXPLANON [Suspect]
     Active Substance: ETONOGESTREL
     Indication: MENORRHAGIA
     Dosage: ?          OTHER ROUTE:IMPLANTED IN THE ARM?
  2. TRI-SPRINCTEC BIRTH CONTROL [Concomitant]
  3. ISOTRETINOIN. [Concomitant]
     Active Substance: ISOTRETINOIN
  4. HORMONE INJECTION [Concomitant]

REACTIONS (4)
  - Anger [None]
  - Depression [None]
  - Hormone level abnormal [None]
  - Acne [None]

NARRATIVE: CASE EVENT DATE: 20200508
